FAERS Safety Report 9840333 (Version 1)
Quarter: 2014Q1

REPORT INFORMATION
  Report Type: Report from Study
  Country: CA (occurrence: CA)
  Receive Date: 20140124
  Receipt Date: 20140124
  Transmission Date: 20141002
  Serious: Yes (Hospitalization)
  Sender: FDA-Public Use
  Company Number: CA-JNJFOC-20140110152

PATIENT
  Age: 58 Year
  Sex: Male
  Weight: 129 kg

DRUGS (1)
  1. REMICADE [Suspect]
     Indication: PSORIASIS
     Route: 042
     Dates: start: 2011

REACTIONS (2)
  - Vertigo [Recovered/Resolved]
  - Blood pressure increased [Recovered/Resolved]
